FAERS Safety Report 16210874 (Version 1)
Quarter: 2019Q2

REPORT INFORMATION
  Report Type: Spontaneous
  Country: US (occurrence: US)
  Receive Date: 20190314
  Receipt Date: 20190314
  Transmission Date: 20190711
  Serious: Yes (Death)
  Sender: FDA-Public Use
  Company Number: None

PATIENT
  Age: 2 Year

DRUGS (1)
  1. CAPECITABINE 150MG [Suspect]
     Active Substance: CAPECITABINE
     Route: 048
     Dates: start: 201809, end: 201902

REACTIONS (1)
  - Death [None]
